FAERS Safety Report 6011131-7 (Version None)
Quarter: 2008Q4

REPORT INFORMATION
  Report Type: 
  Country: None (occurrence: None)
  Receive Date: 20081217
  Receipt Date: 20081217
  Transmission Date: 20090506
  Serious: No
  Sender: FDA-Public Use
  Company Number: None

PATIENT
  Sex: Female
  Weight: 74.55 kg

DRUGS (3)
  1. ROBITUSSIN WITH CODEINE (GUAIFENESIN AC) [Suspect]
     Dosage: 100-10MG/5 SYRUP 5 ML Q6H ORAL
     Route: 048
     Dates: start: 20081204, end: 20081216
  2. FLUTICASONE PROPIONATE [Concomitant]
  3. MOTRIN [Concomitant]

REACTIONS (1)
  - GASTROINTESTINAL PAIN [None]
